FAERS Safety Report 9405164 (Version 2)
Quarter: 2013Q3

REPORT INFORMATION
  Report Type: Spontaneous
  Country: AU (occurrence: AU)
  Receive Date: 20130717
  Receipt Date: 20130822
  Transmission Date: 20140515
  Serious: Yes (Death, Other)
  Sender: FDA-Public Use
  Company Number: AU-B.I. PHARMACEUTICALS,INC./RIDGEFIELD-2013-AU-00844AU

PATIENT
  Age: 84 Year
  Sex: Female

DRUGS (3)
  1. PRADAXA [Suspect]
     Indication: CEREBROVASCULAR ACCIDENT PROPHYLAXIS
     Dosage: 220 MG
     Dates: start: 20111012
  2. PRADAXA [Suspect]
     Indication: ATRIAL FIBRILLATION
  3. PROTON PUMP INHIBITOR [Concomitant]

REACTIONS (1)
  - Lung neoplasm malignant [Fatal]
